FAERS Safety Report 9099869 (Version 5)
Quarter: 2013Q2

REPORT INFORMATION
  Report Type: Report from Study
  Country: US (occurrence: US)
  Receive Date: 20130214
  Receipt Date: 20130603
  Transmission Date: 20140414
  Serious: Yes (Hospitalization, Other)
  Sender: FDA-Public Use
  Company Number: US-GENZYME-MOZO-1000819

PATIENT
  Age: 70 Year
  Sex: Female
  Weight: 94 kg

DRUGS (4)
  1. MOZOBIL [Suspect]
     Indication: ACUTE MYELOID LEUKAEMIA
     Dosage: 810 MCG/KG, UNK, CYCLE 2 OF CHEMOTHERAPY
     Route: 042
     Dates: start: 20130123, end: 20130127
  2. DECITABINE [Suspect]
     Indication: ACUTE MYELOID LEUKAEMIA
     Dosage: 43 MG, UNK, CYCLE 1 OF CHEMOTHERAPY
     Route: 065
     Dates: start: 20130102, end: 20130111
  3. DECITABINE [Suspect]
     Dosage: 42 MG, UNK, CYCLE 2 OF CHEMOTHERAPY
     Route: 065
     Dates: start: 20130123, end: 20130201
  4. DECITABINE [Suspect]
     Dosage: 41 MG, UNK, CYCLE 3 OF CHEMOTHERAPY
     Route: 065
     Dates: start: 20130222, end: 20130226

REACTIONS (2)
  - Renal failure acute [Recovered/Resolved]
  - Hypoxia [Recovered/Resolved]
